FAERS Safety Report 12365206 (Version 1)
Quarter: 2016Q2

REPORT INFORMATION
  Report Type: Spontaneous
  Country: FR (occurrence: FR)
  Receive Date: 20160512
  Receipt Date: 20160512
  Transmission Date: 20160815
  Serious: Yes (Hospitalization)
  Sender: FDA-Public Use
  Company Number: FR-009507513-1605FRA005169

PATIENT
  Age: 69 Year
  Sex: Male

DRUGS (8)
  1. ZOPHREN (ONDANSETRON) [Suspect]
     Active Substance: ONDANSETRON
     Indication: NAUSEA
     Dosage: UNK
     Dates: start: 20160421, end: 20160422
  2. LEVOTHYROXINE SODIUM. [Concomitant]
     Active Substance: LEVOTHYROXINE SODIUM
  3. UROMITEXAN [Suspect]
     Active Substance: MESNA
     Indication: CHEMOTHERAPY
     Dosage: 6800 MG, QD
     Route: 041
     Dates: start: 20160421, end: 20160422
  4. PLITICAN [Suspect]
     Active Substance: ALIZAPRIDE HYDROCHLORIDE
     Indication: NAUSEA
     Dosage: UNK
     Dates: start: 20160421, end: 20160422
  5. DIFFU-K [Concomitant]
     Active Substance: POTASSIUM CHLORIDE
  6. DOLIPRANE [Concomitant]
     Active Substance: ACETAMINOPHEN
  7. EMEND [Suspect]
     Active Substance: APREPITANT
     Indication: NAUSEA
     Dosage: UNK
     Route: 048
     Dates: start: 20160421, end: 20160422
  8. IFOSFAMIDE. [Suspect]
     Active Substance: IFOSFAMIDE
     Indication: CHEMOTHERAPY
     Dosage: 5600 MG, QD
     Route: 041
     Dates: start: 20160421, end: 20160422

REACTIONS (1)
  - Encephalopathy [Not Recovered/Not Resolved]

NARRATIVE: CASE EVENT DATE: 20160423
